FAERS Safety Report 4704935-1 (Version None)
Quarter: 2005Q3

REPORT INFORMATION
  Report Type: 
  Country: None (occurrence: None)
  Receive Date: 20050701
  Receipt Date: 20050629
  Transmission Date: 20060218
  Serious: Yes (Death, Hospitalization, Other)
  Sender: FDA-Public Use
  Company Number: LS-BRISTOL-MYERS SQUIBB COMPANY-13019666

PATIENT
  Age: 28 Year
  Sex: Male
  Weight: 49 kg

DRUGS (3)
  1. EFAVIRENZ [Suspect]
     Indication: HIV INFECTION
     Dates: start: 20041007, end: 20050114
  2. STAVUDINE [Suspect]
     Indication: HIV INFECTION
     Dates: start: 20041007, end: 20050114
  3. LAMIVUDINE [Suspect]
     Indication: HIV INFECTION
     Dates: start: 20041007, end: 20050114

REACTIONS (5)
  - ANAEMIA [None]
  - HEPATOTOXICITY [None]
  - IMMUNE RECONSTITUTION SYNDROME [None]
  - JAUNDICE [None]
  - TUBERCULOSIS [None]
